FAERS Safety Report 4821420-7 (Version None)
Quarter: 2005Q4

REPORT INFORMATION
  Report Type: 
  Country: None (occurrence: None)
  Receive Date: 20051103
  Receipt Date: 20051020
  Transmission Date: 20060501
  Serious: Yes (Hospitalization)
  Sender: FDA-Public Use
  Company Number: 200510948BVD

PATIENT
  Age: 77 Year
  Sex: Female

DRUGS (5)
  1. AVELOX [Suspect]
     Indication: BRONCHITIS
     Dosage: 400 MG, TOTAL DAILY, ORAL
     Route: 048
     Dates: start: 20050923, end: 20050930
  2. ACC LONG [Concomitant]
  3. THYRONAJOD [Concomitant]
  4. CISPLATIN [Concomitant]
  5. METRONIDAZOLE [Concomitant]

REACTIONS (4)
  - CLOSTRIDIUM COLITIS [None]
  - CULTURE STOOL POSITIVE [None]
  - PROCTOCOLITIS [None]
  - PSEUDOMONAS INFECTION [None]
